FAERS Safety Report 11092383 (Version 1)
Quarter: 2015Q2

REPORT INFORMATION
  Report Type: Spontaneous
  Country: US (occurrence: None)
  Receive Date: 20150505
  Receipt Date: 20150505
  Transmission Date: 20150821
  Serious: Yes (Hospitalization)
  Sender: FDA-Public Use
  Company Number: None

PATIENT
  Sex: Female

DRUGS (1)
  1. ST. IVES PROTECT + GLOW WITH UV PROTECTION [Suspect]
     Active Substance: OCTINOXATE\OXYBENZONE
     Dates: end: 20150407

REACTIONS (6)
  - Application site pruritus [None]
  - Application site irritation [None]
  - Expired product administered [None]
  - Application site rash [None]
  - Urticaria [None]
  - Anaphylactic reaction [None]

NARRATIVE: CASE EVENT DATE: 20150410
